FAERS Safety Report 13764735 (Version 2)
Quarter: 2025Q3

REPORT INFORMATION
  Report Type: Spontaneous
  Country: IN (occurrence: IN)
  Receive Date: 20170718
  Receipt Date: 20250905
  Transmission Date: 20251021
  Serious: Yes (Other)
  Sender: BAUSCH AND LOMB
  Company Number: IN-MLMSERVICE-20170706-0795446-2

PATIENT
  Age: 21 Year
  Sex: Male

DRUGS (4)
  1. PENTOXIFYLLINE [Suspect]
     Active Substance: PENTOXIFYLLINE
     Indication: Skin ulcer
     Route: 065
  2. AZATHIOPRINE [Suspect]
     Active Substance: AZATHIOPRINE
     Indication: Skin ulcer
     Route: 065
  3. ASPIRIN [Suspect]
     Active Substance: ASPIRIN
     Indication: Skin ulcer
     Dosage: 75-150 MG
     Route: 065
  4. CYCLOSPORINE [Suspect]
     Active Substance: CYCLOSPORINE
     Indication: Skin ulcer
     Dosage: 100-200 MG
     Route: 065

REACTIONS (2)
  - Hypertension [Unknown]
  - Therapy partial responder [Unknown]
